FAERS Safety Report 5503588-2 (Version None)
Quarter: 2007Q4

REPORT INFORMATION
  Report Type: 
  Country: None (occurrence: None)
  Receive Date: 20071029
  Receipt Date: 20071019
  Transmission Date: 20080405
  Serious: Yes (Death, Other)
  Sender: FDA-Public Use
  Company Number: 151-C5013-07101136

PATIENT
  Age: 74 Year
  Sex: Female

DRUGS (1)
  1. CC-5013 (LENALIDOMIDE) (10 MILLIGRAM, CAPSULES) [Suspect]
     Indication: MYELODYSPLASTIC SYNDROME
     Dosage: ORAL
     Route: 048
     Dates: start: 20070601

REACTIONS (2)
  - NEUTROPENIA [None]
  - SEPSIS [None]
